FAERS Safety Report 14687842 (Version 1)
Quarter: 2018Q1

REPORT INFORMATION
  Report Type: Spontaneous
  Country: US (occurrence: US)
  Receive Date: 20180328
  Receipt Date: 20180328
  Transmission Date: 20180509
  Serious: Yes (Death)
  Sender: FDA-Public Use
  Company Number: PHHY2018US045402

PATIENT
  Age: 60 Year
  Sex: Female

DRUGS (1)
  1. ACETAMINOPHEN. [Suspect]
     Active Substance: ACETAMINOPHEN
     Indication: PRODUCT USED FOR UNKNOWN INDICATION
     Dosage: UNK
     Route: 065

REACTIONS (11)
  - Tachycardia [Fatal]
  - Coma [Fatal]
  - Coagulopathy [Fatal]
  - Metabolic acidosis [Fatal]
  - Anion gap [Fatal]
  - Arrhythmia [Fatal]
  - Respiratory depression [Fatal]
  - Hepatotoxicity [Fatal]
  - Hypotension [Fatal]
  - Electrocardiogram QRS complex prolonged [Fatal]
  - Hypoglycaemia [Fatal]
